FAERS Safety Report 5560027-3 (Version None)
Quarter: 2007Q4

REPORT INFORMATION
  Report Type: 
  Country: None (occurrence: None)
  Receive Date: 20071214
  Receipt Date: 20071026
  Transmission Date: 20080405
  Serious: Yes (Hospitalization)
  Sender: FDA-Public Use
  Company Number: US-ABBOTT-07P-163-0422627-00

PATIENT
  Sex: Male
  Weight: 69.916 kg

DRUGS (3)
  1. HUMIRA [Suspect]
     Indication: ANKYLOSING SPONDYLITIS
     Route: 058
     Dates: start: 20060901
  2. INDOMETHACIN [Suspect]
     Indication: ANKYLOSING SPONDYLITIS
     Route: 048
  3. PREDNISONE [Concomitant]
     Indication: ANKYLOSING SPONDYLITIS
     Route: 048

REACTIONS (4)
  - ANKYLOSING SPONDYLITIS [None]
  - GASTROINTESTINAL HAEMORRHAGE [None]
  - INJECTION SITE ERYTHEMA [None]
  - INJECTION SITE REACTION [None]
